FAERS Safety Report 5813744-1 (Version None)
Quarter: 2008Q3

REPORT INFORMATION
  Report Type: 
  Country: None (occurrence: None)
  Receive Date: 20080717
  Receipt Date: 20080707
  Transmission Date: 20090109
  Serious: Yes (Life-Threatening, Hospitalization, Disabling)
  Sender: FDA-Public Use
  Company Number: PHHY2008FR11553

PATIENT
  Sex: Male
  Weight: 95 kg

DRUGS (8)
  1. EXFORGE [Suspect]
     Dosage: 5/80 MG
     Route: 048
     Dates: start: 20070901, end: 20071101
  2. EXFORGE [Suspect]
     Dosage: 5/160 MG
     Route: 048
     Dates: start: 20071101, end: 20071201
  3. EXFORGE [Suspect]
     Dosage: 10/160 MG
     Route: 048
     Dates: start: 20071201, end: 20080112
  4. FUROSEMIDE [Concomitant]
  5. KARDEGIC [Concomitant]
  6. BRICANYL [Concomitant]
  7. PULMICORT-100 [Concomitant]
  8. VASTAREL [Concomitant]

REACTIONS (3)
  - DIALYSIS [None]
  - HYPERKALAEMIA [None]
  - RENAL FAILURE [None]
